FAERS Safety Report 25534572 (Version 1)
Quarter: 2025Q3

REPORT INFORMATION
  Report Type: Report from Study
  Country: US (occurrence: US)
  Receive Date: 20250709
  Receipt Date: 20250709
  Transmission Date: 20251020
  Serious: Yes (Hospitalization, Other)
  Sender: TAKEDA
  Company Number: US-TAKEDA-2025TUS061445

PATIENT
  Sex: Female

DRUGS (29)
  1. PONATINIB [Suspect]
     Active Substance: PONATINIB
     Indication: Chronic myeloid leukaemia (in remission)
     Dosage: 30 MILLIGRAM, QD
     Dates: start: 201711
  2. PONATINIB [Suspect]
     Active Substance: PONATINIB
     Dosage: 15 MILLIGRAM, QD
  3. PONATINIB [Suspect]
     Active Substance: PONATINIB
     Dosage: 15 MILLIGRAM, QD
  4. VITAMIN D3 [Concomitant]
     Active Substance: CHOLECALCIFEROL
  5. TRAZODONE HYDROCHLORIDE [Concomitant]
     Active Substance: TRAZODONE HYDROCHLORIDE
  6. TIZANIDINE HYDROCHLORIDE [Concomitant]
     Active Substance: TIZANIDINE HYDROCHLORIDE
  7. TRAMADOL HCL [Concomitant]
     Active Substance: TRAMADOL HYDROCHLORIDE
  8. TRAMADOL HCL [Concomitant]
     Active Substance: TRAMADOL HYDROCHLORIDE
  9. MIRTAZAPINE [Concomitant]
     Active Substance: MIRTAZAPINE
  10. MIRALAX [Concomitant]
     Active Substance: POLYETHYLENE GLYCOL 3350
  11. METFORMIN HYDROCHLORIDE [Concomitant]
     Active Substance: METFORMIN HYDROCHLORIDE
  12. LYRICA [Concomitant]
     Active Substance: PREGABALIN
  13. LISINOPRIL [Concomitant]
     Active Substance: LISINOPRIL
  14. LINZESS [Concomitant]
     Active Substance: LINACLOTIDE
  15. LINZESS [Concomitant]
     Active Substance: LINACLOTIDE
  16. ACETAMINOPHEN\HYDROCODONE [Concomitant]
     Active Substance: ACETAMINOPHEN\HYDROCODONE
  17. FENOFIBRATE [Concomitant]
     Active Substance: FENOFIBRATE
  18. B12 [Concomitant]
  19. AZELASTINE HYDROCHLORIDE [Concomitant]
     Active Substance: AZELASTINE HYDROCHLORIDE
  20. AZELASTINE [Concomitant]
     Active Substance: AZELASTINE
  21. HYDROMORPHONE HCL [Concomitant]
     Active Substance: HYDROMORPHONE HYDROCHLORIDE
  22. OLMESARTAN MEDOXOMIL [Concomitant]
     Active Substance: OLMESARTAN MEDOXOMIL
  23. CLONIDINE HYDROCHLORIDE [Concomitant]
     Active Substance: CLONIDINE HYDROCHLORIDE
  24. SYMBICORT [Concomitant]
     Active Substance: BUDESONIDE\FORMOTEROL FUMARATE DIHYDRATE
  25. TRULICITY [Concomitant]
     Active Substance: DULAGLUTIDE
  26. METOPROLOL TARTRATE [Concomitant]
     Active Substance: METOPROLOL TARTRATE
  27. ROSUVASTATIN CALCIUM [Concomitant]
     Active Substance: ROSUVASTATIN CALCIUM
  28. VALSARTAN [Concomitant]
     Active Substance: VALSARTAN
  29. VASCEPA [Concomitant]
     Active Substance: ICOSAPENT ETHYL

REACTIONS (14)
  - Hypertension [Not Recovered/Not Resolved]
  - Mental impairment [Unknown]
  - Eyelid rash [Recovering/Resolving]
  - Blood triglycerides increased [Unknown]
  - Blood pressure increased [Unknown]
  - Blood glucose increased [Unknown]
  - Headache [Unknown]
  - Vomiting [Unknown]
  - Rash [Recovering/Resolving]
  - Back pain [Unknown]
  - Nausea [Unknown]
  - Fatigue [Unknown]
  - Constipation [Unknown]
  - Off label use [Unknown]
